FAERS Safety Report 21543787 (Version 4)
Quarter: 2023Q2

REPORT INFORMATION
  Report Type: Report from Study
  Country: CA (occurrence: CA)
  Receive Date: 20221102
  Receipt Date: 20230406
  Transmission Date: 20230722
  Serious: Yes (Hospitalization)
  Sender: FDA-Public Use
  Company Number: CA-GILEAD-2022-0603513

PATIENT
  Sex: Female

DRUGS (12)
  1. SACITUZUMAB GOVITECAN-HZIY [Suspect]
     Active Substance: SACITUZUMAB GOVITECAN-HZIY
     Indication: Triple negative breast cancer
     Dosage: 524 MG
     Route: 042
     Dates: start: 20221006
  2. SACITUZUMAB GOVITECAN-HZIY [Suspect]
     Active Substance: SACITUZUMAB GOVITECAN-HZIY
     Dosage: 75% OF 10MG/KG, DAY 1
     Route: 042
     Dates: start: 20221108
  3. SACITUZUMAB GOVITECAN-HZIY [Suspect]
     Active Substance: SACITUZUMAB GOVITECAN-HZIY
     Dosage: 515 MG
     Route: 042
     Dates: start: 20230131
  4. SACITUZUMAB GOVITECAN-HZIY [Suspect]
     Active Substance: SACITUZUMAB GOVITECAN-HZIY
     Dosage: 515 MG
     Route: 042
     Dates: start: 20230314
  5. SACITUZUMAB GOVITECAN-HZIY [Suspect]
     Active Substance: SACITUZUMAB GOVITECAN-HZIY
     Dosage: 515 MG
     Route: 042
     Dates: start: 20230321
  6. ADRIAMYCIN [Concomitant]
     Active Substance: DOXORUBICIN HYDROCHLORIDE
  7. CYCLOPHOSPHAMIDE [Concomitant]
     Active Substance: CYCLOPHOSPHAMIDE
  8. CARBOPLATIN;DOCETAXEL [Concomitant]
  9. CARBOPLATIN [Concomitant]
     Active Substance: CARBOPLATIN
  10. TAXOTERE [Concomitant]
     Active Substance: DOCETAXEL
  11. CYCLOPHOSPHAMIDE\DOXORUBICIN [Concomitant]
     Active Substance: CYCLOPHOSPHAMIDE\DOXORUBICIN
  12. ERIBULIN [Concomitant]
     Active Substance: ERIBULIN

REACTIONS (2)
  - COVID-19 [Unknown]
  - Inappropriate schedule of product administration [Not Recovered/Not Resolved]
